FAERS Safety Report 4360841-6 (Version None)
Quarter: 2004Q2

REPORT INFORMATION
  Report Type: 
  Country: None (occurrence: None)
  Receive Date: 20040517
  Receipt Date: 20040505
  Transmission Date: 20050107
  Serious: Yes (Hospitalization)
  Sender: FDA-Public Use
  Company Number: HQWYE680303MAY04

PATIENT
  Age: 35 Year
  Sex: Male

DRUGS (5)
  1. RAPAMUNE [Suspect]
     Indication: PROPHYLAXIS AGAINST TRANSPLANT REJECTION
     Dosage: 1 MG 1X PER 1 DAY; ORAL
     Route: 048
  2. LOSARTAN POTASSIUM [Concomitant]
  3. CARVEDILOL [Concomitant]
  4. PREDNISONE [Concomitant]
  5. MYCOPHENOLATE MOFETIL [Concomitant]

REACTIONS (8)
  - CSF PRESSURE INCREASED [None]
  - CSF PROTEIN INCREASED [None]
  - HEADACHE [None]
  - HYPERTENSION [None]
  - IMMUNOSUPPRESSION [None]
  - INTRACRANIAL PRESSURE INCREASED [None]
  - PAPILLOEDEMA [None]
  - PLEOCYTOSIS [None]
